FAERS Safety Report 25994274 (Version 1)
Quarter: 2025Q4

REPORT INFORMATION
  Report Type: Spontaneous
  Country: IL (occurrence: IL)
  Receive Date: 20251104
  Receipt Date: 20251104
  Transmission Date: 20260118
  Serious: Yes (Other)
  Sender: SANOFI AVENTIS
  Company Number: IL-SA-2025SA322728

PATIENT
  Age: 64 Year
  Sex: Male

DRUGS (1)
  1. DUPIXENT [Suspect]
     Active Substance: DUPILUMAB
     Indication: Nasal polyps
     Dosage: UNK

REACTIONS (5)
  - Eosinophilic granulomatosis with polyangiitis [Unknown]
  - Cough [Unknown]
  - Secretion discharge [Unknown]
  - Antineutrophil cytoplasmic antibody increased [Unknown]
  - Condition aggravated [Unknown]
